FAERS Safety Report 7071912-8 (Version None)
Quarter: 2010Q4

REPORT INFORMATION
  Report Type: 
  Country: None (occurrence: None)
  Receive Date: 20101029
  Receipt Date: 20100111
  Transmission Date: 20110411
  Serious: Yes (Other)
  Sender: FDA-Public Use
  Company Number: A0814764A

PATIENT
  Age: 82 Year
  Sex: Male

DRUGS (3)
  1. ADVAIR DISKUS 100/50 [Suspect]
     Indication: CHRONIC OBSTRUCTIVE PULMONARY DISEASE
     Route: 055
     Dates: start: 20060101
  2. TIMOLOL EYE DROPS [Concomitant]
  3. XALATAN [Concomitant]

REACTIONS (2)
  - CATARACT [None]
  - GLAUCOMA [None]
